FAERS Safety Report 23605636 (Version 1)
Quarter: 2024Q1

REPORT INFORMATION
  Report Type: Spontaneous
  Country: US (occurrence: US)
  Receive Date: 20240307
  Receipt Date: 20240307
  Transmission Date: 20240409
  Serious: Yes (Hospitalization)
  Sender: FDA-Public Use
  Company Number: US-MYLANLABS-2024M1020652

PATIENT
  Age: 45 Year
  Sex: Female

DRUGS (3)
  1. TRAZODONE [Suspect]
     Active Substance: TRAZODONE HYDROCHLORIDE
     Indication: Product used for unknown indication
     Dosage: UNK, INGESTED FIVE PILLS
     Route: 048
  2. BUPROPION [Concomitant]
     Active Substance: BUPROPION
     Indication: Major depression
     Dosage: UNK
     Route: 065
  3. CLONAZEPAM [Concomitant]
     Active Substance: CLONAZEPAM
     Indication: Product used for unknown indication
     Dosage: UNK
     Route: 065

REACTIONS (8)
  - Intentional overdose [Recovering/Resolving]
  - Intentional product misuse [Recovering/Resolving]
  - Toxicity to various agents [Recovering/Resolving]
  - Ataxia [Unknown]
  - Dizziness [Unknown]
  - Urinary incontinence [Unknown]
  - Electrocardiogram QT prolonged [Recovered/Resolved]
  - Hypotension [Recovering/Resolving]
